FAERS Safety Report 20335202 (Version 1)
Quarter: 2022Q1

REPORT INFORMATION
  Report Type: Spontaneous
  Country: None (occurrence: FR)
  Receive Date: 20220114
  Receipt Date: 20220114
  Transmission Date: 20220423
  Serious: Yes (Hospitalization)
  Sender: FDA-Public Use
  Company Number: FR-SERB S.A.S.-2123929

PATIENT
  Age: 70 Year
  Sex: Male
  Weight: 80 kg

DRUGS (9)
  1. CYANOKIT [Suspect]
     Active Substance: HYDROXOCOBALAMIN
     Indication: Poisoning
     Route: 042
     Dates: start: 20210611
  2. HEPARINE CHOAY 25 000 UI/5 ml, solution?injectable (I.V.) en flacon (H [Concomitant]
     Route: 042
     Dates: start: 20210611, end: 20210617
  3. HEPARINE CHOAY 25 000 UI/5 ml, solution?injectable (I.V.) en flacon (H [Concomitant]
     Route: 042
     Dates: start: 20210621, end: 20210622
  4. LOVENOX [Concomitant]
     Active Substance: ENOXAPARIN SODIUM
     Route: 058
     Dates: start: 20210617, end: 20210621
  5. MORPHINE [Concomitant]
     Active Substance: MORPHINE
     Route: 042
     Dates: start: 20210611
  6. KETAMINE [Concomitant]
     Active Substance: KETAMINE
     Route: 042
     Dates: start: 20210611
  7. CELOCURINE (SUXAMETHONIUM?CHLORIDE) [Concomitant]
     Route: 042
     Dates: start: 20210611
  8. NORADRENALINE (NORADRENALINE?TARTRATE) [Concomitant]
     Route: 042
     Dates: start: 20210611, end: 20210611
  9. HYDROCORTISONE HEMISUCCINATE (HYDROCORTISONE HYDROGEN SUCCINATE) [Concomitant]
     Dates: start: 20210612

REACTIONS (1)
  - Acute kidney injury [Not Recovered/Not Resolved]

NARRATIVE: CASE EVENT DATE: 20210624
